FAERS Safety Report 5055313-X (Version None)
Quarter: 2006Q3

REPORT INFORMATION
  Report Type: 
  Country: None (occurrence: None)
  Receive Date: 20060719
  Receipt Date: 20060710
  Transmission Date: 20061208
  Serious: Yes (Hospitalization)
  Sender: FDA-Public Use
  Company Number: US-GLAXOSMITHKLINE-A0611770A

PATIENT
  Age: 47 Year
  Sex: Female

DRUGS (1)
  1. GOODY'S [Suspect]
     Indication: TENSION HEADACHE
     Dates: start: 19760101

REACTIONS (15)
  - ABDOMINAL INJURY [None]
  - CONVULSION [None]
  - FALL [None]
  - FATIGUE [None]
  - FEELING ABNORMAL [None]
  - GASTRIC PERFORATION [None]
  - HAEMATEMESIS [None]
  - HEAD INJURY [None]
  - INJURY [None]
  - LOSS OF CONSCIOUSNESS [None]
  - MOUTH HAEMORRHAGE [None]
  - NAUSEA [None]
  - RECTAL HAEMORRHAGE [None]
  - ULCER HAEMORRHAGE [None]
  - WOUND [None]
